FAERS Safety Report 11339719 (Version 2)
Quarter: 2015Q3

REPORT INFORMATION
  Report Type: Spontaneous
  Country: GB (occurrence: None)
  Receive Date: 20150803
  Receipt Date: 20150820
  Transmission Date: 20151125
  Serious: No
  Sender: FDA-Public Use
  Company Number: GB-LHC-2015099

PATIENT
  Age: 90 Year
  Sex: Male

DRUGS (1)
  1. COMPRESSED MEDICAL OXYGEN (OXYGEN) (INHALATION GAS) (OXYGEN) (VERUM) [Suspect]
     Active Substance: OXYGEN
     Indication: PRODUCT USED FOR UNKNOWN INDICATION
     Dosage: 1 HOUR PER DAY AT 2LPM ON BOTH DOMICILIARY AND AMBULATORY USE, 10-15 MINUTE BURSTS
     Route: 055

REACTIONS (4)
  - Device issue [None]
  - Asthenia [None]
  - Dyspnoea [None]
  - Device malfunction [None]
